FAERS Safety Report 5351312-9 (Version None)
Quarter: 2007Q2

REPORT INFORMATION
  Report Type: 
  Country: None (occurrence: None)
  Receive Date: 20070516
  Receipt Date: 20070306
  Transmission Date: 20071010
  Serious: Yes (Other)
  Sender: FDA-Public Use
  Company Number: 2007003981

PATIENT
  Age: 24 Year
  Sex: Female
  Weight: 59.4 kg

DRUGS (4)
  1. DEPO-PROVERA [Suspect]
     Indication: CONTRACEPTION
     Dosage: SEE IMAGE
     Route: 030
     Dates: start: 20060616, end: 20060616
  2. DEPO-PROVERA [Suspect]
     Indication: CONTRACEPTION
     Dosage: SEE IMAGE
     Route: 030
     Dates: start: 20060901, end: 20060901
  3. DEPO-PROVERA [Suspect]
     Indication: CONTRACEPTION
     Dosage: SEE IMAGE
     Route: 030
     Dates: start: 20061201, end: 20061201
  4. DEPO-PROVERA [Suspect]

REACTIONS (3)
  - CONSTIPATION [None]
  - LIMB DISCOMFORT [None]
  - UNINTENDED PREGNANCY [None]
